FAERS Safety Report 7951586-1 (Version None)
Quarter: 2011Q4

REPORT INFORMATION
  Report Type: 
  Country: None (occurrence: None)
  Receive Date: 20111201
  Receipt Date: 20111125
  Transmission Date: 20120403
  Serious: Yes (Hospitalization)
  Sender: FDA-Public Use
  Company Number: FR-ROCHE-1016674

PATIENT
  Age: 65 Year
  Sex: Male

DRUGS (3)
  1. MYCOPHENOLATE MOFETIL (CELLCEPT) [Suspect]
     Indication: DIABETIC NEPHROPATHY
     Route: 048
  2. NEORAL [Suspect]
     Indication: DIABETIC NEPHROPATHY
     Route: 048
  3. PREDNISONE TAB [Suspect]
     Indication: DIABETIC NEPHROPATHY
     Route: 048

REACTIONS (1)
  - PANNICULITIS [None]
